FAERS Safety Report 20866271 (Version 1)
Quarter: 2022Q2

REPORT INFORMATION
  Report Type: Spontaneous
  Country: US (occurrence: None)
  Receive Date: 20220523
  Receipt Date: 20220523
  Transmission Date: 20220721
  Serious: No
  Sender: FDA-Public Use
  Company Number: None

PATIENT
  Age: 72 Year
  Sex: Male
  Weight: 158.7 kg

DRUGS (10)
  1. CAPECITABINE [Suspect]
     Active Substance: CAPECITABINE
     Indication: Colon cancer
     Dosage: FREQUENCY : TWICE A DAY;?
     Route: 048
     Dates: start: 202110
  2. DIGOX [Concomitant]
  3. FAMOTIDINE [Concomitant]
     Active Substance: FAMOTIDINE
  4. METOPROLOL TARTRATE [Concomitant]
  5. MULTIVITAMINS CHILDRENS [Concomitant]
  6. PHENOBARBITAL [Concomitant]
  7. PHENYTOIN SODIUM EXTENDED [Concomitant]
  8. POTASSIUM CHLORIDE [Concomitant]
     Active Substance: POTASSIUM CHLORIDE
  9. SPIRONOLACTONE [Concomitant]
  10. TRAZODONE HCL [Concomitant]

REACTIONS (1)
  - Disease progression [None]
